FAERS Safety Report 8380750-5 (Version None)
Quarter: 2012Q2

REPORT INFORMATION
  Report Type: 
  Country: None (occurrence: None)
  Receive Date: 20120523
  Receipt Date: 20120510
  Transmission Date: 20120825
  Serious: Yes (Hospitalization)
  Sender: FDA-Public Use
  Company Number: FR-PFIZER INC-2009286401

PATIENT
  Age: 53 Year
  Sex: Female

DRUGS (5)
  1. LIORESAL [Suspect]
     Indication: MUSCLE CONTRACTURE
     Dosage: 30 MG, 3X/DAY
     Route: 048
     Dates: end: 20090225
  2. EFFEXOR XR [Suspect]
     Indication: DEPRESSION
     Dosage: 75 MG, 3X/DAY
     Route: 048
  3. ALDACTONE [Suspect]
     Indication: ASCITES
     Dosage: 150 MG, 3X/DAY
     Route: 048
  4. ETHANOL [Suspect]
     Dosage: WINE 2 LITERS/DAY IN ADDITION TO PRE-DINNER DRINKS
     Route: 048
  5. ALDACTONE [Suspect]
     Dosage: 6 TABLETS DAY
     Dates: end: 20090225

REACTIONS (3)
  - HEPATIC ENCEPHALOPATHY [None]
  - CONDITION AGGRAVATED [None]
  - CIRRHOSIS ALCOHOLIC [None]
